FAERS Safety Report 6657720-8 (Version None)
Quarter: 2010Q1

REPORT INFORMATION
  Report Type: 
  Country: None (occurrence: None)
  Receive Date: 20100319
  Receipt Date: 20090220
  Transmission Date: 20100710
  Serious: Yes (Other)
  Sender: FDA-Public Use
  Company Number: 2009SP001339

PATIENT
  Age: 49 Year
  Sex: Male

DRUGS (2)
  1. PEG-INTRON [Suspect]
     Indication: HEPATITIS
     Dosage: ; SC
     Route: 058
  2. PRILOSEC [Concomitant]

REACTIONS (2)
  - CELLULITIS [None]
  - INJECTION SITE CELLULITIS [None]
